FAERS Safety Report 6112619-0 (Version None)
Quarter: 2009Q1

REPORT INFORMATION
  Report Type: 
  Country: None (occurrence: None)
  Receive Date: 20090310
  Receipt Date: 20090224
  Transmission Date: 20090719
  Serious: Yes (Other)
  Sender: FDA-Public Use
  Company Number: 2009000520

PATIENT
  Age: 68 Year
  Sex: Male
  Weight: 44.5 kg

DRUGS (9)
  1. ERLOTINIB (ERLOTINIB) (TABLET) (ERLOTINIB) [Suspect]
     Dosage: (150 MG, QD), ORAL
     Route: 048
     Dates: start: 20081205
  2. LOPRESSOR [Concomitant]
  3. FAMOTIDINE [Concomitant]
  4. MUCODYNE (CARBOCISTEINE) [Concomitant]
  5. MUCOSOLVAN (AMBROXOL HYDROCHLORIDE) [Concomitant]
  6. MAGMITT (MAGNESIUM OXIDE) [Concomitant]
  7. BFLUID [Concomitant]
  8. TAZOCIN (PIP/TAZO) [Concomitant]
  9. BIAPENEM [Concomitant]

REACTIONS (1)
  - ECZEMA [None]
